FAERS Safety Report 10213780 (Version 4)
Quarter: 2014Q4

REPORT INFORMATION
  Report Type: Spontaneous
  Country: FR (occurrence: None)
  Receive Date: 20140530
  Receipt Date: 20141222
  Transmission Date: 20150528
  Serious: Yes (Hospitalization)
  Sender: FDA-Public Use
  Company Number: 2014FR0232

PATIENT
  Age: 42 Year
  Sex: Female

DRUGS (5)
  1. SPECIALFOLDINE (FOLIC ACID) (FOLIC ACID) [Concomitant]
  2. IXPRIM (ULTRACET) (PARACETAMOL, TRAMADOL HYDROCHLORIDE) [Concomitant]
  3. RIFINAH [Suspect]
     Active Substance: ISONIAZID\RIFAMPIN
     Indication: TUBERCULOSIS
     Dosage: 2 DOSAGE FORMS (2 DOSAGE FORMS, 1 IN 1 D), ORAL THERAPY DURATION: 1 MONTHS
     Route: 048
     Dates: start: 201403, end: 20140429
  4. METHOTREXATE (METHOTREXATE) (METHOTREXATE) [Suspect]
     Active Substance: METHOTREXATE
     Indication: JUVENILE IDIOPATHIC ARTHRITIS
     Dosage: 2.8571 MG (20 MG, 1 IN 1 WK), ORAL  THERAPY DURATION: 1 YEARS
     Route: 048
     Dates: start: 201210, end: 20140423
  5. KINERET [Suspect]
     Active Substance: ANAKINRA
     Indication: JUVENILE IDIOPATHIC ARTHRITIS
     Dosage: 1 IN 1 D, SUBCUTANEOUS THERAPY DURATION: 16 DAYS
     Route: 058
     Dates: start: 20140414, end: 20140429

REACTIONS (2)
  - Jaundice [None]
  - Hepatitis [None]

NARRATIVE: CASE EVENT DATE: 20140428
